FAERS Safety Report 13441719 (Version 2)
Quarter: 2017Q3

REPORT INFORMATION
  Report Type: Spontaneous
  Country: CA (occurrence: CA)
  Receive Date: 20170414
  Receipt Date: 20170721
  Transmission Date: 20171127
  Serious: Yes (Other)
  Sender: FDA-Public Use
  Company Number: CA-AMGEN-CANSP2017055154

PATIENT
  Sex: Male

DRUGS (7)
  1. ZENHALE [Concomitant]
     Active Substance: FORMOTEROL FUMARATE\MOMETASONE FUROATE
     Dosage: 5 MUG, TID
  2. TELMISARTAN. [Concomitant]
     Active Substance: TELMISARTAN
     Dosage: 80 MG, QD
  3. NORVASC [Concomitant]
     Active Substance: AMLODIPINE BESYLATE
  4. ASPIRIN. [Concomitant]
     Active Substance: ASPIRIN
     Dosage: 81 MG, QD
  5. METFORMIN [Concomitant]
     Active Substance: METFORMIN HYDROCHLORIDE
     Dosage: 500 UNK, BID
  6. REPATHA [Suspect]
     Active Substance: EVOLOCUMAB
     Indication: LIPIDS INCREASED
     Dosage: UNK
     Route: 065
     Dates: start: 2016
  7. TAMSULOSIN [Concomitant]
     Active Substance: TAMSULOSIN
     Dosage: 0.4 MG, BID

REACTIONS (13)
  - Productive cough [Recovered/Resolved]
  - Dizziness [Unknown]
  - Rash [Recovered/Resolved]
  - Oxygen saturation decreased [Unknown]
  - Asthenia [Recovered/Resolved]
  - Blood glucose increased [Unknown]
  - Eye haemorrhage [Recovered/Resolved]
  - Influenza like illness [Recovered/Resolved]
  - Balance disorder [Unknown]
  - Eye discharge [Recovered/Resolved]
  - Oedema [Unknown]
  - Coronary artery disease [Unknown]
  - Umbilical hernia [Unknown]

NARRATIVE: CASE EVENT DATE: 2016
